FAERS Safety Report 17151663 (Version 2)
Quarter: 2020Q1

REPORT INFORMATION
  Report Type: Spontaneous
  Country: US (occurrence: US)
  Receive Date: 20191213
  Receipt Date: 20200213
  Transmission Date: 20200409
  Serious: Yes (Death, Other)
  Sender: FDA-Public Use
  Company Number: US-PFIZER INC-2019536984

PATIENT
  Age: 86 Year
  Sex: Male

DRUGS (2)
  1. PERCOCET [Suspect]
     Active Substance: ACETAMINOPHEN\OXYCODONE HYDROCHLORIDE
     Dosage: UNK, (5/325)
  2. MINOXIDIL. [Suspect]
     Active Substance: MINOXIDIL
     Dosage: UNK

REACTIONS (3)
  - Malaise [Fatal]
  - Drug hypersensitivity [Unknown]
  - Renal failure [Unknown]
